FAERS Safety Report 14912596 (Version 1)
Quarter: 2018Q2

REPORT INFORMATION
  Report Type: Spontaneous
  Country: IN (occurrence: IN)
  Receive Date: 20180518
  Receipt Date: 20180518
  Transmission Date: 20180711
  Serious: Yes (Death, Hospitalization, Other)
  Sender: FDA-Public Use
  Company Number: IN-LUPIN LIMITED-2018-03636

PATIENT
  Age: 25 Year
  Sex: Male
  Weight: 45 kg

DRUGS (17)
  1. ETHAMBUTOL [Suspect]
     Active Substance: ETHAMBUTOL HYDROCHLORIDE
     Indication: TUBERCULOSIS
     Dosage: UNK
     Route: 065
  2. LEVOFLOXACIN. [Interacting]
     Active Substance: LEVOFLOXACIN
     Indication: TUBERCULOSIS
     Dosage: 100 MG, UNK
     Route: 065
  3. ASERA P [Concomitant]
     Indication: PAIN
     Dosage: UNK
     Route: 065
  4. TOLPERISONE [Concomitant]
     Active Substance: TOLPERISONE
     Indication: PAIN
     Dosage: UNK
     Route: 065
  5. LEVOFLOXACIN. [Interacting]
     Active Substance: LEVOFLOXACIN
     Dosage: 500 MG, UNK
     Route: 065
  6. CIPROFLOXACIN. [Suspect]
     Active Substance: CIPROFLOXACIN
     Indication: PRODUCT USED FOR UNKNOWN INDICATION
     Dosage: UNK
     Route: 065
  7. TOLPERISONE [Concomitant]
     Active Substance: TOLPERISONE
     Indication: TENDERNESS
  8. ETHAMBUTOL [Suspect]
     Active Substance: ETHAMBUTOL HYDROCHLORIDE
     Dosage: 800 MG, UNK
     Route: 065
  9. RIFAMPIN. [Suspect]
     Active Substance: RIFAMPIN
     Indication: TUBERCULOSIS
     Dosage: UNK
     Route: 065
  10. PYRAZINAMIDE. [Suspect]
     Active Substance: PYRAZINAMIDE
     Indication: TUBERCULOSIS
     Dosage: UNK
     Route: 065
  11. STREPTOMYCIN [Concomitant]
     Active Substance: STREPTOMYCIN\STREPTOMYCIN SULFATE
     Indication: TUBERCULOSIS
     Dosage: 125 MG, UNK
     Route: 065
  12. ISONIAZID TABLETS USP [Suspect]
     Active Substance: ISONIAZID
     Indication: TUBERCULOSIS
     Dosage: UNK
     Route: 065
  13. ETHAMBUTOL [Suspect]
     Active Substance: ETHAMBUTOL HYDROCHLORIDE
     Dosage: 100 MG, UNK
     Route: 065
  14. ASERA P [Concomitant]
     Indication: TENDERNESS
  15. RABEPRAZOLE [Concomitant]
     Active Substance: RABEPRAZOLE
     Indication: PAIN
     Dosage: UNK
     Route: 065
  16. RABEPRAZOLE [Concomitant]
     Active Substance: RABEPRAZOLE
     Indication: TENDERNESS
  17. STREPTOMYCIN [Concomitant]
     Active Substance: STREPTOMYCIN\STREPTOMYCIN SULFATE
     Dosage: 500 MG, UNK
     Route: 065

REACTIONS (5)
  - Cardio-respiratory arrest [Fatal]
  - Toxic epidermal necrolysis [Unknown]
  - Hepatotoxicity [Unknown]
  - Drug eruption [Not Recovered/Not Resolved]
  - Therapeutic product cross-reactivity [Unknown]
